FAERS Safety Report 24414095 (Version 1)
Quarter: 2024Q4

REPORT INFORMATION
  Report Type: Spontaneous
  Country: CA (occurrence: CA)
  Receive Date: 20241008
  Receipt Date: 20241008
  Transmission Date: 20250115
  Serious: Yes (Death, Hospitalization)
  Sender: NOVITIUM PHARMA
  Company Number: CA-NOVITIUMPHARMA-2024CANVP02124

PATIENT
  Age: 32 Year
  Sex: Female

DRUGS (3)
  1. LEVOCARNITINE [Suspect]
     Active Substance: LEVOCARNITINE
     Indication: Hyperammonaemic encephalopathy
  2. LACTULOSE [Concomitant]
     Active Substance: LACTULOSE
     Indication: Hyperammonaemic encephalopathy
  3. RIFAXIMIN [Concomitant]
     Active Substance: RIFAXIMIN
     Indication: Hyperammonaemic encephalopathy

REACTIONS (1)
  - Drug ineffective [Fatal]
